FAERS Safety Report 5496167-7 (Version None)
Quarter: 2007Q4

REPORT INFORMATION
  Report Type: 
  Country: None (occurrence: None)
  Receive Date: 20071025
  Receipt Date: 20071018
  Transmission Date: 20080405
  Serious: Yes (Hospitalization)
  Sender: FDA-Public Use
  Company Number: JP-BAYER-200710717BYL

PATIENT
  Age: 70 Year
  Sex: Male
  Weight: 64 kg

DRUGS (6)
  1. ADALAT [Suspect]
     Indication: HYPERTENSION
     Dosage: TOTAL DAILY DOSE: 20 MG  UNIT DOSE: 20 MG
     Route: 048
     Dates: start: 20070510, end: 20071001
  2. ENALAPRIL MALEATE [Concomitant]
     Indication: HYPERTENSION
     Route: 048
  3. ESTAZOLAM [Concomitant]
     Indication: INSOMNIA
     Route: 048
     Dates: start: 20070713
  4. ZYLORIC [Concomitant]
     Route: 048
  5. TICLOPIDINE HCL [Concomitant]
     Route: 048
  6. ASPIRIN [Concomitant]
     Route: 048

REACTIONS (1)
  - MUSCLE DISORDER [None]
